FAERS Safety Report 8897057 (Version 1)
Quarter: 2012Q4

REPORT INFORMATION
  Report Type: 
  Country: US (occurrence: US)
  Receive Date: 20121108
  Receipt Date: 20121108
  Transmission Date: 20130627
  Serious: No
  Sender: FDA-Public Use
  Company Number: US-AMGEN-USASP2012026945

PATIENT
  Age: 59 Year
  Sex: Female
  Weight: 59.86 kg

DRUGS (5)
  1. ENBREL [Suspect]
     Indication: PRODUCT USED FOR UNKNOWN INDICATION
     Dosage: 50 mg, qwk
     Route: 058
  2. SYNTHROID [Concomitant]
     Dosage: 25 mug, UNK
  3. VITAMIN D3 [Concomitant]
     Dosage: 5000 IU, UNK
  4. VITAMIN B12                        /00056201/ [Concomitant]
     Dosage: 6000 mug, UNK
  5. ZEGERID                            /00661201/ [Concomitant]

REACTIONS (3)
  - Lymph node pain [Not Recovered/Not Resolved]
  - Oropharyngeal pain [Recovered/Resolved]
  - Lymphadenopathy [Not Recovered/Not Resolved]
